FAERS Safety Report 5800310-7 (Version None)
Quarter: 2008Q3

REPORT INFORMATION
  Report Type: 
  Country: None (occurrence: None)
  Receive Date: 20080701
  Receipt Date: 20080616
  Transmission Date: 20090109
  Serious: Yes (Death)
  Sender: FDA-Public Use
  Company Number: 2008AL007238

PATIENT
  Age: 85 Year
  Sex: Male
  Weight: 54.4316 kg

DRUGS (6)
  1. DIGOXIN [Suspect]
     Indication: ARRHYTHMIA
     Dosage: 0.125MG DAILY PO
     Route: 048
  2. MAXZIDE [Concomitant]
  3. TRENTAL [Concomitant]
  4. PACERONE [Concomitant]
  5. ASPIRIN [Concomitant]
  6. METOPROLOL [Concomitant]

REACTIONS (7)
  - CARDIOACTIVE DRUG LEVEL ABOVE THERAPEUTIC [None]
  - DYSPNOEA [None]
  - HEART RATE IRREGULAR [None]
  - LOSS OF CONSCIOUSNESS [None]
  - SPEECH DISORDER [None]
  - THERAPEUTIC AGENT TOXICITY [None]
  - TREMOR [None]
